FAERS Safety Report 5388580-3 (Version None)
Quarter: 2007Q3

REPORT INFORMATION
  Report Type: 
  Country: None (occurrence: None)
  Receive Date: 20070712
  Receipt Date: 20070628
  Transmission Date: 20080115
  Serious: Yes (Other)
  Sender: FDA-Public Use
  Company Number: GXKR2007GB05515

PATIENT
  Age: 60 Year
  Sex: Female

DRUGS (3)
  1. TIMOLOL MALEATE [Suspect]
     Indication: INTRAOCULAR PRESSURE TEST ABNORMAL
     Dosage: UNK, UNK, TOPICAL
     Route: 061
  2. DORZOLAMIDE [Suspect]
     Indication: INTRAOCULAR PRESSURE TEST ABNORMAL
     Dosage: UNK, UNK, TOPICAL
     Route: 061
  3. FLUOROURACIL [Concomitant]

REACTIONS (4)
  - CHOROIDAL DETACHMENT [None]
  - HYPOTONY OF EYE [None]
  - INTRAOCULAR PRESSURE INCREASED [None]
  - VISUAL ACUITY REDUCED [None]
